FAERS Safety Report 4342876-2 (Version None)
Quarter: 2004Q2

REPORT INFORMATION
  Report Type: 
  Country: None (occurrence: None)
  Receive Date: 20040416
  Receipt Date: 20040401
  Transmission Date: 20050107
  Serious: Yes (Hospitalization)
  Sender: FDA-Public Use
  Company Number: A02200401162

PATIENT
  Age: 37 Year
  Sex: Male

DRUGS (5)
  1. STILNOX - (ZOLPIDEM) - TABLET - 10 MG [Suspect]
     Indication: SLEEP DISORDER
     Route: 048
     Dates: start: 20040104, end: 20040104
  2. STILNOX - (ZOLPIDEM) - TABLET - 10 MG [Suspect]
     Indication: SUICIDE ATTEMPT
     Route: 048
     Dates: start: 20040104, end: 20040104
  3. LEXOMIL - (BROMAZEPAM) - TABLET - 6 MG [Suspect]
     Indication: ANXIETY
     Route: 048
     Dates: start: 20040104, end: 20040104
  4. ZOLOFT [Suspect]
     Indication: ANXIETY
     Route: 048
     Dates: start: 20040104, end: 20040104
  5. PROPRANOLOL [Suspect]
     Indication: HYPERTENSION
     Route: 048
     Dates: start: 20040104, end: 20040104

REACTIONS (6)
  - BRADYCARDIA [None]
  - INTENTIONAL OVERDOSE [None]
  - LOSS OF CONSCIOUSNESS [None]
  - PNEUMONIA ASPIRATION [None]
  - RENAL FAILURE ACUTE [None]
  - RHABDOMYOLYSIS [None]
